FAERS Safety Report 13182579 (Version 1)
Quarter: 2017Q1

REPORT INFORMATION
  Report Type: Spontaneous
  Country: US (occurrence: US)
  Receive Date: 20170202
  Receipt Date: 20170202
  Transmission Date: 20170428
  Serious: Yes (Hospitalization)
  Sender: FDA-Public Use
  Company Number: US-ROCHE-1886260

PATIENT
  Age: 9 Year
  Sex: Female

DRUGS (8)
  1. KITABIS PAK [Suspect]
     Active Substance: TOBRAMYCIN
     Indication: CYSTIC FIBROSIS
     Dosage: KITABIS PAK 300/5 MG/ML BY NEBULIZER
     Route: 055
     Dates: start: 20161123
  2. RANITIDINE. [Concomitant]
     Active Substance: RANITIDINE
     Route: 065
  3. CETIRIZINE [Concomitant]
     Active Substance: CETIRIZINE HYDROCHLORIDE
     Dosage: 1 MG/ML
     Route: 065
  4. VITAMIN D3 [Concomitant]
     Active Substance: CHOLECALCIFEROL
     Dosage: DIETARY SUPPLEMET
     Route: 065
  5. SODIUM CHLORIDE. [Concomitant]
     Active Substance: SODIUM CHLORIDE
     Dosage: INHALED SODIUM CHLORIDE
     Route: 065
  6. URSODIOL. [Concomitant]
     Active Substance: URSODIOL
     Route: 065
  7. AQUADEKS [Concomitant]
     Active Substance: MINERALS\VITAMINS
  8. PULMOZYME [Suspect]
     Active Substance: DORNASE ALFA
     Indication: CYSTIC FIBROSIS
     Dosage: PULMOZYME 1/1 MG/ML
     Route: 055
     Dates: start: 20140331

REACTIONS (2)
  - Pneumonia [Unknown]
  - Pharyngitis streptococcal [Unknown]

NARRATIVE: CASE EVENT DATE: 20170107
